FAERS Safety Report 8502301-4 (Version None)
Quarter: 2012Q3

REPORT INFORMATION
  Report Type: 
  Country: None (occurrence: None)
  Receive Date: 20120711
  Receipt Date: 20111003
  Transmission Date: 20120928
  Serious: No
  Sender: FDA-Public Use
  Company Number: US-COVIDIEN/TYCO HEALTHCARE/MALLINCKRODT-T201102037

PATIENT
  Sex: Male
  Weight: 136.5 kg

DRUGS (5)
  1. OXYCODONE HCL [Suspect]
     Indication: PAIN
     Dosage: 1 TAB Q 3-4 HRS, PRN
     Route: 048
     Dates: start: 20070101, end: 20110701
  2. LEVOTHYROXINE SODIUM [Concomitant]
     Indication: HYPERTHYROIDISM
     Dosage: UNK, QD
     Route: 048
  3. KLONOPIN [Concomitant]
     Indication: ANXIETY
     Dosage: UNK, PRN
     Route: 048
  4. FLONASE [Concomitant]
     Indication: RHINITIS SEASONAL
     Dosage: UNK, QD
     Route: 045
  5. BENADRYL [Concomitant]
     Dosage: UNK, PRN
     Route: 048

REACTIONS (2)
  - DRUG INEFFECTIVE [None]
  - NIPPLE PAIN [None]
